FAERS Safety Report 13101734 (Version 6)
Quarter: 2017Q3

REPORT INFORMATION
  Report Type: Spontaneous
  Country: KR (occurrence: KR)
  Receive Date: 20170110
  Receipt Date: 20170922
  Transmission Date: 20171127
  Serious: Yes (Hospitalization, Other)
  Sender: FDA-Public Use
  Company Number: KR-009507513-1701KOR003784

PATIENT
  Age: 61 Year
  Sex: Male
  Weight: 62 kg

DRUGS (63)
  1. NAVELBINE [Concomitant]
     Active Substance: VINORELBINE TARTRATE
     Dosage: 41.5 MG ONCE (CYCLE1), STRENGTH: 10 MG/ML
     Route: 042
     Dates: start: 20160616, end: 20160616
  2. DEXAMETHASONE SODIUM PHOSPHATE. [Concomitant]
     Active Substance: DEXAMETHASONE SODIUM PHOSPHATE
     Dosage: 8 MG, QD;STRENGTH: 5 MG/ML
     Route: 042
     Dates: start: 20160622, end: 20160622
  3. ASPIRIN. [Concomitant]
     Active Substance: ASPIRIN
     Indication: PROPHYLAXIS
     Dosage: 100 MG ( 1 TABLET), QD
     Route: 048
     Dates: start: 20160713
  4. LYRICA [Concomitant]
     Active Substance: PREGABALIN
     Indication: PAIN
     Dosage: 75 MG (1 CAPSULE), BID
     Route: 048
     Dates: start: 20160817
  5. CIMETIDINE [Concomitant]
     Active Substance: CIMETIDINE
     Indication: PREMEDICATION
     Dosage: 1 DF (1 AMPOULE), QD. STRENGTH: 200 MG/2ML
     Route: 042
     Dates: start: 20160616, end: 20160617
  6. CIMETIDINE [Concomitant]
     Active Substance: CIMETIDINE
     Dosage: 1 DF (1 AMPOULE), QD. STRENGTH: 200 MG/2ML
     Route: 042
     Dates: start: 20160712, end: 20160714
  7. EMEND (FOSAPREPITANT DIMEGLUMINE) [Suspect]
     Active Substance: FOSAPREPITANT DIMEGLUMINE
     Dosage: 150 MG, ONCE
     Route: 042
     Dates: start: 20160712, end: 20160712
  8. DEXAMETHASONE SODIUM PHOSPHATE. [Concomitant]
     Active Substance: DEXAMETHASONE SODIUM PHOSPHATE
     Dosage: 8 MG, QD;STRENGTH: 5 MG/ML
     Route: 042
     Dates: start: 20160827, end: 20160828
  9. DEXAMETHASONE SODIUM PHOSPHATE. [Concomitant]
     Active Substance: DEXAMETHASONE SODIUM PHOSPHATE
     Dosage: 8 MG, QD;STRENGTH: 5 MG/ML
     Route: 042
     Dates: start: 20160810, end: 20160810
  10. DEXAMETHASONE. [Concomitant]
     Active Substance: DEXAMETHASONE
     Dosage: 8 MG, ONCE
     Route: 048
     Dates: start: 20160714, end: 20160714
  11. DEXAMETHASONE. [Concomitant]
     Active Substance: DEXAMETHASONE
     Dosage: 8 MG, BID
     Route: 048
     Dates: start: 20160804, end: 20160805
  12. OLMETEC [Concomitant]
     Active Substance: OLMESARTAN MEDOXOMIL
     Indication: HYPERTENSION
     Dosage: 0.5 DF ( 0.5 TABLET), QD
     Route: 048
     Dates: start: 20160704
  13. CIMET [Concomitant]
     Indication: PROPHYLAXIS
     Dosage: 200 MG(1 TABLET) ONCE
     Route: 048
     Dates: start: 20160829, end: 20160829
  14. CIMETIDINE [Concomitant]
     Active Substance: CIMETIDINE
     Indication: PROPHYLAXIS
     Dosage: 1 DF (1 AMPOULE), QD. STRENGTH: 200 MG/2ML
     Route: 042
     Dates: start: 20160826, end: 20160828
  15. EMEND (FOSAPREPITANT DIMEGLUMINE) [Suspect]
     Active Substance: FOSAPREPITANT DIMEGLUMINE
     Dosage: 150 MG, ONCE
     Route: 042
     Dates: start: 20160802, end: 20160802
  16. EMEND (FOSAPREPITANT DIMEGLUMINE) [Suspect]
     Active Substance: FOSAPREPITANT DIMEGLUMINE
     Dosage: UNK
  17. DEXAMETHASONE. [Concomitant]
     Active Substance: DEXAMETHASONE
     Dosage: 8 MG, BID
     Route: 048
     Dates: start: 20160829, end: 20160829
  18. ALOXI [Concomitant]
     Active Substance: PALONOSETRON HYDROCHLORIDE
     Dosage: 5 ML, ONCE
     Route: 042
     Dates: start: 20160712, end: 20160712
  19. CIMET [Concomitant]
     Dosage: 200 MG(1 TABLET), ONCE
     Route: 048
     Dates: start: 20160715, end: 20160715
  20. CIMET [Concomitant]
     Dosage: 200 MG(1 TABLET), QD
     Route: 048
     Dates: start: 20160618, end: 20160619
  21. APIDRA [Concomitant]
     Active Substance: INSULIN GLULISINE
     Dosage: 8 IU, ONCE; STRENGTH 1000IU/10ML
     Route: 058
     Dates: start: 20160826, end: 20160826
  22. EMEND (FOSAPREPITANT DIMEGLUMINE) [Suspect]
     Active Substance: FOSAPREPITANT DIMEGLUMINE
     Indication: PROPHYLAXIS OF NAUSEA AND VOMITING
     Dosage: 150 MG, ONCE
     Route: 042
     Dates: start: 20160616, end: 20160616
  23. DEXAMETHASONE SODIUM PHOSPHATE. [Concomitant]
     Active Substance: DEXAMETHASONE SODIUM PHOSPHATE
     Dosage: 12 MG, ONCE, STRENGTH: 5 MG/ML
     Route: 042
     Dates: start: 20160616, end: 20160616
  24. DEXAMETHASONE SODIUM PHOSPHATE. [Concomitant]
     Active Substance: DEXAMETHASONE SODIUM PHOSPHATE
     Dosage: 8 MG, QD;STRENGTH: 5 MG/ML
     Route: 042
     Dates: start: 20160712, end: 20160712
  25. ALOXI [Concomitant]
     Active Substance: PALONOSETRON HYDROCHLORIDE
     Dosage: 5 ML, ONCE
     Route: 042
     Dates: start: 20160616, end: 20160616
  26. ALOXI [Concomitant]
     Active Substance: PALONOSETRON HYDROCHLORIDE
     Dosage: 5 ML, ONCE
     Route: 042
     Dates: start: 20160802, end: 20160802
  27. ERDOS [Concomitant]
     Indication: PRODUCTIVE COUGH
     Dosage: 300 MG (1 CAPSULE), TID
     Route: 048
     Dates: start: 20160629
  28. INSTANYL [Concomitant]
     Active Substance: FENTANYL
     Indication: PAIN
     Dosage: 1 ^BTL^, QD STRENGTH: 50 MCG / 1.8 ML
     Route: 055
     Dates: start: 20160704
  29. CIMETIDINE [Concomitant]
     Active Substance: CIMETIDINE
     Dosage: 1 DF (1 AMPOULE), ONCE. STRENGTH: 200 MG/2ML
     Route: 042
     Dates: start: 20160718, end: 20160718
  30. NAVELBINE [Concomitant]
     Active Substance: VINORELBINE TARTRATE
     Dosage: 41.5 MG ONCE (CYCLE 2), STRENGTH: 10 MG/ML
     Route: 042
     Dates: start: 20160718, end: 20160718
  31. CISPLAN [Concomitant]
     Active Substance: CISPLATIN
     Indication: LUNG NEOPLASM MALIGNANT
     Dosage: 95.6 MG, ONCE (CYCLE 4), STRENGTH: 50 MG /100ML
     Route: 042
     Dates: start: 20160826, end: 20160826
  32. CISPLAN [Concomitant]
     Active Substance: CISPLATIN
     Dosage: 124.5 MG, ONCE (CYCLE 1), STRENGTH: 50 MG /100ML
     Route: 042
     Dates: start: 20160616, end: 20160616
  33. DEXAMETHASONE SODIUM PHOSPHATE. [Concomitant]
     Active Substance: DEXAMETHASONE SODIUM PHOSPHATE
     Dosage: 8 MG, QD;STRENGTH: 5 MG/ML
     Route: 042
     Dates: start: 20160803, end: 20160803
  34. DEXAMETHASONE. [Concomitant]
     Active Substance: DEXAMETHASONE
     Dosage: 8 MG, BID
     Route: 048
     Dates: start: 20160618, end: 20160619
  35. DEXAMETHASONE. [Concomitant]
     Active Substance: DEXAMETHASONE
     Dosage: 8 MG, BID
     Route: 048
     Dates: start: 20160715, end: 20160715
  36. MACPERAN [Concomitant]
     Active Substance: METOCLOPRAMIDE HYDROCHLORIDE
     Indication: NAUSEA
     Dosage: 2 DF( 2 TABLETS),  TID
     Route: 048
     Dates: start: 20160622
  37. EMEND (FOSAPREPITANT DIMEGLUMINE) [Suspect]
     Active Substance: FOSAPREPITANT DIMEGLUMINE
     Dosage: 150 MG, ONCE
     Route: 042
     Dates: start: 20160826, end: 20160826
  38. CISPLAN [Concomitant]
     Active Substance: CISPLATIN
     Dosage: 95 MG, ONCE (CYCLE 3), STRENGTH: 50 MG /100ML
     Route: 042
     Dates: start: 20160802, end: 20160802
  39. DEXAMETHASONE SODIUM PHOSPHATE. [Concomitant]
     Active Substance: DEXAMETHASONE SODIUM PHOSPHATE
     Dosage: 8 MG, QD;STRENGTH: 5 MG/ML
     Route: 042
     Dates: start: 20160617, end: 20160617
  40. DEXAMETHASONE SODIUM PHOSPHATE. [Concomitant]
     Active Substance: DEXAMETHASONE SODIUM PHOSPHATE
     Dosage: 8 MG, QD;STRENGTH: 5 MG/ML
     Route: 042
     Dates: start: 20160718, end: 20160718
  41. DEXAMETHASONE SODIUM PHOSPHATE. [Concomitant]
     Active Substance: DEXAMETHASONE SODIUM PHOSPHATE
     Dosage: 8 MG, QD;STRENGTH: 5 MG/ML
     Route: 042
     Dates: start: 20160714, end: 20160714
  42. ALOXI [Concomitant]
     Active Substance: PALONOSETRON HYDROCHLORIDE
     Indication: PREMEDICATION
     Dosage: 5 ML, ONCE
     Route: 042
     Dates: start: 20160826, end: 20160826
  43. PANTOLOC [Concomitant]
     Active Substance: PANTOPRAZOLE SODIUM
     Indication: PROPHYLAXIS
     Dosage: 20 MG (1 TABLET), QD
     Route: 048
     Dates: start: 20160714, end: 20160914
  44. APIDRA [Concomitant]
     Active Substance: INSULIN GLULISINE
     Indication: PROPHYLAXIS
     Dosage: 8 IU, BID; STRENGTH 1000IU/10ML
     Route: 058
     Dates: start: 20160827, end: 20160827
  45. APIDRA [Concomitant]
     Active Substance: INSULIN GLULISINE
     Dosage: 8 IU, ONCE; STRENGTH 1000IU/10ML
     Route: 058
     Dates: start: 20160828, end: 20160828
  46. APIDRA [Concomitant]
     Active Substance: INSULIN GLULISINE
     Dosage: 10 IU, ONCE; STRENGTH 1000IU/10ML
     Route: 058
     Dates: start: 20160826, end: 20160826
  47. APIDRA [Concomitant]
     Active Substance: INSULIN GLULISINE
     Dosage: 6 IU, ONCE
     Route: 058
     Dates: start: 20160827, end: 20160827
  48. DEXAMETHASONE SODIUM PHOSPHATE. [Concomitant]
     Active Substance: DEXAMETHASONE SODIUM PHOSPHATE
     Dosage: 12 MG, ONCE, STRENGTH: 5 MG/ML
     Route: 042
     Dates: start: 20170712, end: 20170712
  49. DEXAMETHASONE SODIUM PHOSPHATE. [Concomitant]
     Active Substance: DEXAMETHASONE SODIUM PHOSPHATE
     Dosage: 12 MG, ONCE, STRENGTH: 5 MG/ML
     Route: 042
     Dates: start: 20160802, end: 20160802
  50. DEXAMETHASONE. [Concomitant]
     Active Substance: DEXAMETHASONE
     Indication: PROPHYLAXIS
     Dosage: 8 MG, ONCE
     Route: 048
     Dates: start: 20160828, end: 20160828
  51. MEGACE [Concomitant]
     Active Substance: MEGESTROL ACETATE
     Indication: NAUSEA
     Dosage: 1 ^PK^, QD
     Route: 048
     Dates: start: 20160711
  52. HEXAMEDINE [Concomitant]
     Indication: PROPHYLAXIS
     Dosage: 1 DF (REPORTED AS BTL), QD ROUTE: GARGLE
     Route: 002
     Dates: start: 20160825
  53. CIMETIDINE [Concomitant]
     Active Substance: CIMETIDINE
     Dosage: 1 DF (1 AMPOULE), ONCE. STRENGTH: 200 MG/2ML
     Route: 042
     Dates: start: 20160802, end: 20160803
  54. CIMETIDINE [Concomitant]
     Active Substance: CIMETIDINE
     Dosage: 1 DF (1 AMPOULE), ONCE. STRENGTH: 200 MG/2ML
     Route: 042
     Dates: start: 20160810, end: 20160810
  55. NAVELBINE [Concomitant]
     Active Substance: VINORELBINE TARTRATE
     Indication: LUNG NEOPLASM MALIGNANT
     Dosage: 31.9 MG ONCE (CYCLE 4), STRENGTH: 10 MG/ML
     Route: 042
     Dates: start: 20160826, end: 20160826
  56. NAVELBINE [Concomitant]
     Active Substance: VINORELBINE TARTRATE
     Dosage: 41.5 MG ONCE (CYCLE 1), STRENGTH: 10 MG/ML
     Route: 042
     Dates: start: 20160622, end: 20160622
  57. NAVELBINE [Concomitant]
     Active Substance: VINORELBINE TARTRATE
     Dosage: 41.5 MG ONCE (CYCLE 2), STRENGTH: 10 MG/ML
     Route: 042
     Dates: start: 20160712, end: 20160712
  58. NAVELBINE [Concomitant]
     Active Substance: VINORELBINE TARTRATE
     Dosage: 42 MG ONCE (CYCLE 3), STRENGTH: 10 MG/ML
     Route: 042
     Dates: start: 20160802, end: 20160802
  59. NAVELBINE [Concomitant]
     Active Substance: VINORELBINE TARTRATE
     Dosage: 42 MG ONCE (CYCLE 3), STRENGTH: 10 MG/ML
     Route: 042
     Dates: start: 20160810, end: 20160810
  60. CISPLAN [Concomitant]
     Active Substance: CISPLATIN
     Dosage: 93.3 MG, ONCE (CYCLE 2), STRENGTH: 50 MG /100ML
     Route: 042
     Dates: start: 20160712, end: 20160712
  61. DEXAMETHASONE SODIUM PHOSPHATE. [Concomitant]
     Active Substance: DEXAMETHASONE SODIUM PHOSPHATE
     Indication: PREMEDICATION
     Dosage: 12 MG, ONCE, STRENGTH: 5 MG/ML
     Route: 042
     Dates: start: 20160826, end: 20160826
  62. PRIVITUSS [Concomitant]
     Indication: PRODUCTIVE COUGH
     Dosage: 1 DF (PK), TID
     Route: 048
     Dates: start: 20160622
  63. CIMET [Concomitant]
     Dosage: 200 MG(1 TABLET), QD
     Route: 048
     Dates: start: 20160804, end: 20160805

REACTIONS (2)
  - Diarrhoea [Recovered/Resolved]
  - Acute kidney injury [Recovered/Resolved]

NARRATIVE: CASE EVENT DATE: 20160831
